FAERS Safety Report 9286636 (Version 2)
Quarter: 2013Q2

REPORT INFORMATION
  Report Type: Spontaneous
  Country: BR (occurrence: BR)
  Receive Date: 20130513
  Receipt Date: 20130530
  Transmission Date: 20140414
  Serious: Yes (Hospitalization, Other)
  Sender: FDA-Public Use
  Company Number: BR-BIOMARINAP-BR-2013-100807

PATIENT
  Age: 13 Year
  Sex: Male

DRUGS (2)
  1. ALDURAZYME [Suspect]
     Indication: MUCOPOLYSACCHARIDOSIS I
     Dosage: 0.58 MG/KG, QW
     Route: 037
  2. DEXTROSE ELECTROLYTE DM 3AG [Concomitant]
     Indication: PRODUCT USED FOR UNKNOWN INDICATION
     Dosage: UNK
     Dates: start: 20130304, end: 20130304

REACTIONS (7)
  - Incorrect route of drug administration [Unknown]
  - Blindness [Not Recovered/Not Resolved]
  - Hypovolaemic shock [Unknown]
  - Intracranial pressure increased [Unknown]
  - Mobility decreased [Recovering/Resolving]
  - CSF pressure increased [Unknown]
  - Intraocular pressure increased [Unknown]
